FAERS Safety Report 5734557-5 (Version None)
Quarter: 2008Q2

REPORT INFORMATION
  Report Type: 
  Country: None (occurrence: None)
  Receive Date: 20080508
  Receipt Date: 20080508
  Transmission Date: 20081010
  Serious: Yes (Other)
  Sender: FDA-Public Use
  Company Number: None

PATIENT
  Age: 23 Year
  Sex: Female
  Weight: 56.6996 kg

DRUGS (2)
  1. YAZ [Suspect]
     Indication: ACNE
     Dosage: ONE 25MG PILL DAILY PO
     Route: 048
     Dates: start: 20080416, end: 20080507
  2. YAZ [Suspect]
     Indication: DYSMENORRHOEA
     Dosage: ONE 25MG PILL DAILY PO
     Route: 048
     Dates: start: 20080416, end: 20080507

REACTIONS (3)
  - ABDOMINAL PAIN UPPER [None]
  - GASTRIC ULCER [None]
  - VOMITING [None]
